FAERS Safety Report 9743008 (Version 1)
Quarter: 2013Q4

REPORT INFORMATION
  Report Type: Spontaneous
  Country: IE (occurrence: IE)
  Receive Date: 20131210
  Receipt Date: 20131210
  Transmission Date: 20140711
  Serious: Yes (Other)
  Sender: FDA-Public Use
  Company Number: IE-ABBVIE-13P-229-1177778-00

PATIENT
  Age: 35 Year
  Sex: Female

DRUGS (2)
  1. EPILIM CHRONO [Suspect]
     Indication: EXPOSURE VIA BODY FLUID
     Route: 050
     Dates: start: 2008
  2. EPILIM CHRONO [Suspect]
     Indication: FOETAL EXPOSURE DURING PREGNANCY
     Route: 064

REACTIONS (1)
  - Abortion spontaneous [Unknown]
